FAERS Safety Report 5627675-3 (Version None)
Quarter: 2008Q1

REPORT INFORMATION
  Report Type: 
  Country: None (occurrence: None)
  Receive Date: 20080214
  Receipt Date: 20080214
  Transmission Date: 20080703
  Serious: Yes (Hospitalization)
  Sender: FDA-Public Use
  Company Number: None

PATIENT
  Age: 63 Year
  Sex: Female
  Weight: 101.1 kg

DRUGS (2)
  1. DOMPERIDONE 10MG UNKNOWN - POM/ OUTPT DISPENSE- [Suspect]
     Indication: DIABETES MELLITUS
     Dosage: 10MG  ACHS  PO
     Route: 048
     Dates: start: 20080101, end: 20080212
  2. DOMPERIDONE 10MG UNKNOWN - POM/ OUTPT DISPENSE- [Suspect]
     Indication: IMPAIRED GASTRIC EMPTYING
     Dosage: 10MG  ACHS  PO
     Route: 048
     Dates: start: 20080101, end: 20080212

REACTIONS (2)
  - SINUS TACHYCARDIA [None]
  - VENTRICULAR TACHYCARDIA [None]
